FAERS Safety Report 23512008 (Version 2)
Quarter: 2024Q1

REPORT INFORMATION
  Report Type: Report from Study
  Country: US (occurrence: US)
  Receive Date: 20240212
  Receipt Date: 20240219
  Transmission Date: 20240410
  Serious: No
  Sender: FDA-Public Use
  Company Number: US-ABBVIE-5627463

PATIENT
  Sex: Female
  Weight: 70 kg

DRUGS (4)
  1. DUOPA [Suspect]
     Active Substance: CARBIDOPA\LEVODOPA
     Indication: Parkinson^s disease
     Route: 050
     Dates: start: 20221221
  2. DUOPA [Suspect]
     Active Substance: CARBIDOPA\LEVODOPA
  3. AMANTADINE [Concomitant]
     Active Substance: AMANTADINE
     Indication: Dyskinesia
  4. ROPINIROLE [Concomitant]
     Active Substance: ROPINIROLE
     Indication: Parkinson^s disease

REACTIONS (3)
  - Stoma site discharge [Not Recovered/Not Resolved]
  - Stoma complication [Unknown]
  - Stoma site irritation [Not Recovered/Not Resolved]
